FAERS Safety Report 24190256 (Version 2)
Quarter: 2024Q3

REPORT INFORMATION
  Report Type: Spontaneous
  Country: IT (occurrence: IT)
  Receive Date: 20240808
  Receipt Date: 20240813
  Transmission Date: 20241017
  Serious: Yes (Death)
  Sender: ROCHE
  Company Number: None

PATIENT
  Age: 60 Year
  Sex: Male

DRUGS (2)
  1. OCREVUS [Suspect]
     Active Substance: OCRELIZUMAB
     Indication: Multiple sclerosis
     Route: 042
     Dates: start: 2022, end: 202405
  2. LIORESAL [Concomitant]
     Active Substance: BACLOFEN
     Indication: Muscle relaxant therapy
     Route: 048
     Dates: start: 2019, end: 20240708

REACTIONS (2)
  - Pulmonary embolism [Fatal]
  - Carotid artery occlusion [Fatal]

NARRATIVE: CASE EVENT DATE: 20240709
